FAERS Safety Report 5116735-1 (Version None)
Quarter: 2006Q3

REPORT INFORMATION
  Report Type: 
  Country: None (occurrence: None)
  Receive Date: 20060925
  Receipt Date: 20060921
  Transmission Date: 20061208
  Serious: Yes (Other)
  Sender: FDA-Public Use
  Company Number: US-2006-025019

PATIENT
  Age: 74 Year
  Sex: Female
  Weight: 68 kg

DRUGS (1)
  1. MAGNEVIST [Suspect]
     Indication: ANGIOGRAM
     Dosage: 30 ML, 1 DOSE, INTRAVENOUS
     Route: 042
     Dates: start: 20060804, end: 20060804

REACTIONS (17)
  - ACTIVATED PARTIAL THROMBOPLASTIN TIME PROLONGED [None]
  - ANION GAP DECREASED [None]
  - ARTERIAL DISORDER [None]
  - BLOOD CREATINE INCREASED [None]
  - BLOOD GLUCOSE INCREASED [None]
  - BLOOD POTASSIUM INCREASED [None]
  - BLOOD SODIUM DECREASED [None]
  - BLOOD UREA INCREASED [None]
  - BLOOD URIC ACID INCREASED [None]
  - CARBON DIOXIDE DECREASED [None]
  - FEMORAL ARTERIAL STENOSIS [None]
  - INTERNATIONAL NORMALISED RATIO INCREASED [None]
  - LABORATORY TEST ABNORMAL [None]
  - NEPHROPATHY TOXIC [None]
  - RENAL ARTERY STENOSIS [None]
  - RENAL FAILURE [None]
  - SCAN ABDOMEN ABNORMAL [None]
